FAERS Safety Report 4431659-0 (Version None)
Quarter: 2004Q3

REPORT INFORMATION
  Report Type: 
  Country: None (occurrence: None)
  Receive Date: 20040721
  Receipt Date: 20040415
  Transmission Date: 20050211
  Serious: Yes (Other)
  Sender: FDA-Public Use
  Company Number: 2004002717

PATIENT
  Sex: Male

DRUGS (4)
  1. RELPAX [Suspect]
     Indication: HEADACHE
     Dosage: 40 MG (PRN)
     Dates: start: 20030707
  2. OMEPRAZOLE [Concomitant]
  3. HYDROCHLOROTHIAZIDE [Concomitant]
  4. OXYCONTIN [Concomitant]

REACTIONS (7)
  - AGEUSIA [None]
  - ALOPECIA [None]
  - INFECTION [None]
  - LETHARGY [None]
  - NAIL GROWTH CESSATION [None]
  - ONYCHOMADESIS [None]
  - PERIPHERAL VASCULAR DISORDER [None]
